FAERS Safety Report 7038999-X (Version None)
Quarter: 2010Q4

REPORT INFORMATION
  Report Type: 
  Country: None (occurrence: None)
  Receive Date: 20101012
  Receipt Date: 20100929
  Transmission Date: 20110411
  Serious: Yes (Hospitalization, Other)
  Sender: FDA-Public Use
  Company Number: US-ELI_LILLY_AND_COMPANY-US201010000054

PATIENT
  Sex: Female

DRUGS (18)
  1. FORTEO [Suspect]
     Indication: OSTEOPOROSIS
     Dosage: 20 UG, DAILY (1/D)
  2. HUMALOG [Suspect]
     Indication: BLOOD GLUCOSE INCREASED
  3. PLAVIX [Concomitant]
  4. EFFEXOR [Concomitant]
  5. PRAVASTAN [Concomitant]
  6. LYRICA [Concomitant]
  7. PRILOSEC [Concomitant]
  8. COZAAR [Concomitant]
  9. PROVIGIL [Concomitant]
  10. LASIX [Concomitant]
  11. COSOPT [Concomitant]
  12. ALBUTEROL [Concomitant]
  13. PROAIR HFA [Concomitant]
  14. SYMBICORT [Concomitant]
  15. METOLAZONE [Concomitant]
  16. LANTUS [Concomitant]
  17. ULTRACET [Concomitant]
  18. IRON [Concomitant]

REACTIONS (4)
  - BONE DENSITY DECREASED [None]
  - CORONARY ARTERY OCCLUSION [None]
  - LUMBAR VERTEBRAL FRACTURE [None]
  - WRIST FRACTURE [None]
